FAERS Safety Report 4601341-5 (Version None)
Quarter: 2005Q1

REPORT INFORMATION
  Report Type: 
  Country: None (occurrence: None)
  Receive Date: 20050204
  Receipt Date: 20040518
  Transmission Date: 20050727
  Serious: Yes (Hospitalization)
  Sender: FDA-Public Use
  Company Number: US-SHR-04-024916

PATIENT
  Age: 40 Year
  Sex: Female
  Weight: 75.3 kg

DRUGS (1)
  1. MIRENA [Suspect]
     Indication: CONTRACEPTION
     Dosage: 20 UG/DAY, CONT, INTRA-UTERINE
     Route: 015
     Dates: start: 20020729, end: 20040303

REACTIONS (2)
  - OVARIAN CYST [None]
  - TUBO-OVARIAN ABSCESS [None]
